FAERS Safety Report 7303373-5 (Version None)
Quarter: 2011Q1

REPORT INFORMATION
  Report Type: 
  Country: None (occurrence: None)
  Receive Date: 20110221
  Receipt Date: 20110208
  Transmission Date: 20110831
  Serious: Yes (Other)
  Sender: FDA-Public Use
  Company Number: US-ELI_LILLY_AND_COMPANY-US201102004480

PATIENT
  Age: 26 Year
  Sex: Female

DRUGS (2)
  1. PAXIL [Concomitant]
     Indication: DEPRESSION
     Dosage: 40 MG, DAILY (1/D)
     Route: 048
  2. ZYPREXA [Suspect]
     Indication: ANXIETY
     Dosage: 2.5 MG, DAILY (1/D)
     Route: 048

REACTIONS (3)
  - DRUG INTERACTION [None]
  - AKATHISIA [None]
  - OFF LABEL USE [None]
